FAERS Safety Report 22320745 (Version 2)
Quarter: 2024Q2

REPORT INFORMATION
  Report Type: Spontaneous
  Country: US (occurrence: US)
  Receive Date: 20230515
  Receipt Date: 20240521
  Transmission Date: 20240716
  Serious: Yes (Death, Hospitalization, Other)
  Sender: FDA-Public Use
  Company Number: US-SA-SAC20230313000125

PATIENT
  Sex: Female

DRUGS (35)
  1. AUBAGIO [Suspect]
     Active Substance: TERIFLUNOMIDE
     Indication: Multiple sclerosis
     Dosage: 1 DF, QD
     Route: 048
  2. BROMPHENIRAMINE\PSEUDOEPHEDRINE [Concomitant]
     Active Substance: BROMPHENIRAMINE\PSEUDOEPHEDRINE
     Dosage: 10 ML, Q4H (AS NEEDED)
     Route: 048
  3. CLONIDINE HYDROCHLORIDE [Concomitant]
     Active Substance: CLONIDINE HYDROCHLORIDE
     Indication: Blood pressure increased
     Dosage: 1 DF, TID (AS NEEDED)
     Route: 048
  4. DESVENLAFAXINE SUCCINATE [Concomitant]
     Active Substance: DESVENLAFAXINE SUCCINATE
     Dosage: 1 DF, QD
     Route: 048
  5. DIALYVITE 3000 [Concomitant]
     Active Substance: .ALPHA.-TOCOPHEROL SUCCINATE, D-\ASCORBIC ACID\BIOTIN\CALCIUM PANTOTHENATE\COBALAMIN\FOLIC ACID\NIAC
     Dosage: 1 DF, QD
     Route: 048
  6. ELIQUIS [Concomitant]
     Active Substance: APIXABAN
     Dosage: 1 DF, BID (FOR 90 DAYS)
     Route: 048
     Dates: start: 20220316
  7. ENTRESTO [Concomitant]
     Active Substance: SACUBITRIL\VALSARTAN
     Dosage: 1 DF, BID (FOR 180 DAYS)
     Route: 048
  8. GABAPENTIN [Concomitant]
     Active Substance: GABAPENTIN
     Dosage: 2 DF, QD (BEFORE BED TIME FOR 30 DAYS)
     Route: 048
  9. LIDOCAINE\PRILOCAINE [Concomitant]
     Active Substance: LIDOCAINE\PRILOCAINE
     Dosage: UNK
     Route: 061
  10. LOKELMA [Concomitant]
     Active Substance: SODIUM ZIRCONIUM CYCLOSILICATE
     Dosage: 10 G, QD (FOR 30 DAYS)
     Route: 048
  11. METOCLOPRAMIDE [Concomitant]
     Active Substance: METOCLOPRAMIDE
     Dosage: 1 DF, QID (BEFORE MEALS AND AT BEDTIME)
     Route: 048
  12. METOCLOPRAMIDE [Concomitant]
     Active Substance: METOCLOPRAMIDE
     Dosage: 1 DF, QID (FOR 30 DAYS)
     Route: 048
  13. METOPROLOL SUCCINATE [Concomitant]
     Active Substance: METOPROLOL SUCCINATE
     Dosage: 1 DF, QD
     Route: 048
  14. OFLOXACIN [Concomitant]
     Active Substance: OFLOXACIN
     Dosage: 5 DROP, BID (5 DROPS IN THE LEFT EAR)
     Route: 065
  15. ONDANSETRON [Concomitant]
     Active Substance: ONDANSETRON
     Indication: Nausea
     Dosage: 1 DF, Q8H (PLACE 1 TABLET ON TOP OF THE TONGUE EVERY 8 HOURS AS NEEDED)
     Route: 065
  16. ONDANSETRON [Concomitant]
     Active Substance: ONDANSETRON
     Indication: Vomiting
  17. OXYCODONE [Concomitant]
     Active Substance: OXYCODONE\OXYCODONE HYDROCHLORIDE
     Indication: Pain
     Dosage: 1 DF, Q4H (AS NEDED)
     Route: 048
  18. PANTOPRAZOLE [Concomitant]
     Active Substance: PANTOPRAZOLE
     Dosage: 1 DF, QD
     Route: 048
  19. PRAMIPEXOLE [Concomitant]
     Active Substance: PRAMIPEXOLE\PRAMIPEXOLE DIHYDROCHLORIDE
     Dosage: 1 DF, QD  (FOR 90 DAYS)
     Route: 048
     Dates: start: 20220331
  20. METHYLPREDNISOLONE [Concomitant]
     Active Substance: METHYLPREDNISOLONE
     Dosage: 6 DF (ON DAY 1 AS DIRECTED ON PACKAGE AND DECREASE BY 1 TAB EACH DAY FOR A TOTAL OF 6 DAYS))
     Route: 065
  21. PREDNISONE [Concomitant]
     Active Substance: PREDNISONE
     Dosage: 2 DF, QD (FOR 5 DAYS)
     Route: 048
  22. ROSUVASTATIN [Concomitant]
     Active Substance: ROSUVASTATIN
     Dosage: 1 DF (FOR 90 DAYS)
     Route: 048
     Dates: start: 20220316
  23. DEXAMETHASONE\TOBRAMYCIN [Concomitant]
     Active Substance: DEXAMETHASONE\TOBRAMYCIN
     Dosage: 4 DROP, QID (INSTALL 2 DROPS IN EACH EYE 4 TIMES A DAY)
     Route: 065
  24. ATORVASTATIN [Concomitant]
     Active Substance: ATORVASTATIN
     Dosage: 1 DF, QD
     Route: 048
  25. AZITHROMYCIN [Concomitant]
     Active Substance: AZITHROMYCIN
     Dosage: TAKE AS DIRECTED
     Route: 065
  26. BUMETANIDE [Concomitant]
     Active Substance: BUMETANIDE
     Dosage: 1 DF, BID
     Route: 048
  27. CARVEDILOL [Concomitant]
     Active Substance: CARVEDILOL
     Dosage: 1 DF, BID
     Route: 048
  28. CARVEDILOL [Concomitant]
     Active Substance: CARVEDILOL
     Dosage: 1 DF, BID
     Route: 065
  29. CINACALCET [Concomitant]
     Active Substance: CINACALCET
     Dosage: 1 DF, QD (1 TABLET BY MOUTH DIALY WITH DINNER (DO NOT TAKE LESS THAN 12 HOURS PRIOR TO DIALYSIS)
     Route: 048
  30. FOSRENOL [Concomitant]
     Active Substance: LANTHANUM CARBONATE
     Dosage: UNK UNK, TID (MIX 2 PACKEST WITH SMALL AMOUNT OF APPLE SAUCE (OR) SIMILAR FOOD, EAT IMMEDIATELY 3 TI
     Route: 065
  31. ACETAMINOPHEN\HYDROCODONE [Concomitant]
     Active Substance: ACETAMINOPHEN\HYDROCODONE
     Dosage: 1 DF (1 TABLET EVERY 4-6 HOURS FOR 3 DYAS)
     Route: 048
  32. MIDODRINE [Concomitant]
     Active Substance: MIDODRINE
     Dosage: 2 DF, TID (AS NEEDED)
     Route: 048
  33. CODEINE\PROMETHAZINE [Concomitant]
     Active Substance: CODEINE\PROMETHAZINE
     Dosage: 5 ML, Q6H (AS NEEDED)
     Route: 048
  34. SPIRONOLACTONE [Concomitant]
     Active Substance: SPIRONOLACTONE
     Dosage: 1 DF, QD
     Route: 048
  35. TOBRAMYCIN AND DEXAMETHASONE [Concomitant]
     Active Substance: DEXAMETHASONE\TOBRAMYCIN
     Dosage: 4 DROP, QID (INSTALL 2 DROPS IN EACH EYE 4 TIMES A DAY)
     Route: 065

REACTIONS (9)
  - Myocardial infarction [Fatal]
  - Cardiac failure [Unknown]
  - Electrolyte imbalance [Unknown]
  - Dyspnoea [Unknown]
  - Crepitations [Unknown]
  - Cervicogenic headache [Unknown]
  - Condition aggravated [Unknown]
  - Neck pain [Unknown]
  - Condition aggravated [Unknown]
